FAERS Safety Report 7595533 (Version 2)
Quarter: 2015Q1

REPORT INFORMATION
  Report Type: Spontaneous
  Country: US (occurrence: US)
  Receive Date: 20100920
  Receipt Date: 20150116
  Transmission Date: 20150721
  Serious: Yes (Hospitalization)
  Sender: FDA-Public Use
  Company Number: US-ASTRAZENECA-2009UW17561

PATIENT
  Age: 43 Year
  Sex: Male
  Weight: 79.4 kg

DRUGS (8)
  1. BUPROPION SR [Concomitant]
     Active Substance: BUPROPION
     Dosage: 150 MG Q AM
     Dates: start: 20090619
  2. ABILIFY [Concomitant]
     Active Substance: ARIPIPRAZOLE
     Dosage: 5 MG TO 10 MG DAILY
     Dates: start: 20090326
  3. SEROQUEL [Suspect]
     Active Substance: QUETIAPINE FUMARATE
     Indication: BIPOLAR DISORDER
     Route: 048
     Dates: start: 2005, end: 200905
  4. TRAZODONE [Concomitant]
     Active Substance: TRAZODONE HYDROCHLORIDE
     Dosage: 50 MG TO 100 MG
     Dates: start: 20090619
  5. SEROQUEL [Suspect]
     Active Substance: QUETIAPINE FUMARATE
     Indication: BIPOLAR DISORDER
     Route: 048
  6. TOPAMAX [Concomitant]
     Active Substance: TOPIRAMATE
     Dosage: 25 MG QHS, 25 MG BID
     Dates: start: 20090326
  7. SEROQUEL [Suspect]
     Active Substance: QUETIAPINE FUMARATE
     Indication: BIPOLAR DISORDER
     Route: 048
     Dates: start: 20090326
  8. REMERON [Concomitant]
     Active Substance: MIRTAZAPINE
     Dosage: 15 MG QHS
     Dates: start: 20091203

REACTIONS (5)
  - Adverse drug reaction [Unknown]
  - Type 1 diabetes mellitus [Unknown]
  - Weight increased [Unknown]
  - Activities of daily living impaired [Unknown]
  - Ketoacidosis [Unknown]

NARRATIVE: CASE EVENT DATE: 2007
